FAERS Safety Report 13844483 (Version 4)
Quarter: 2018Q1

REPORT INFORMATION
  Report Type: Spontaneous
  Country: US (occurrence: US)
  Receive Date: 20170808
  Receipt Date: 20180329
  Transmission Date: 20180508
  Serious: Yes (Hospitalization)
  Sender: FDA-Public Use
  Company Number: US-BAUSCH-BL-2017-023251

PATIENT
  Age: 72 Year
  Sex: Male
  Weight: 110.78 kg

DRUGS (5)
  1. XENAZINE [Suspect]
     Active Substance: TETRABENAZINE
     Indication: CHRONIC TIC DISORDER
     Route: 048
     Dates: start: 201703
  2. AUSTEDO [Concomitant]
     Active Substance: DEUTETRABENAZINE
     Indication: PRODUCT USED FOR UNKNOWN INDICATION
     Dates: start: 201712
  3. XENAZINE [Suspect]
     Active Substance: TETRABENAZINE
     Indication: DYSTONIA
     Dosage: 2 TABLETS THREE TIMES A DAY
     Route: 048
     Dates: start: 20170608, end: 201708
  4. XENAZINE [Suspect]
     Active Substance: TETRABENAZINE
     Indication: TARDIVE DYSKINESIA
     Dosage: CURRENT DOSE TWO TABLETS TWO TIMES A DAY
     Route: 048
     Dates: start: 2017
  5. XENAZINE [Suspect]
     Active Substance: TETRABENAZINE
     Route: 048
     Dates: start: 201708

REACTIONS (3)
  - Off label use [Not Recovered/Not Resolved]
  - Gallbladder operation [Recovered/Resolved]
  - Adverse event [Recovered/Resolved]

NARRATIVE: CASE EVENT DATE: 2017
